FAERS Safety Report 6222939-7 (Version None)
Quarter: 2009Q2

REPORT INFORMATION
  Report Type: 
  Country: None (occurrence: None)
  Receive Date: 20090611
  Receipt Date: 20090605
  Transmission Date: 20091009
  Serious: Yes (Hospitalization)
  Sender: FDA-Public Use
  Company Number: DE-ABBOTT-09P-062-0578024-00

PATIENT
  Sex: Female
  Weight: 68 kg

DRUGS (9)
  1. HUMIRA [Suspect]
     Indication: POLYARTHRITIS
     Route: 058
     Dates: start: 19980101, end: 20081001
  2. HUMIRA [Suspect]
     Route: 058
     Dates: start: 20090301
  3. METEX [Concomitant]
     Indication: POLYARTHRITIS
     Route: 058
     Dates: start: 19960101
  4. METEX [Concomitant]
     Route: 058
     Dates: start: 20080501
  5. HYDROCHLOROQUIN [Concomitant]
     Indication: POLYARTHRITIS
     Route: 048
  6. HYDROCHLOROQUIN [Concomitant]
     Route: 048
     Dates: start: 20080501
  7. ARCOXIA [Concomitant]
     Indication: POLYARTHRITIS
     Route: 048
     Dates: start: 20080801
  8. COXIBES [Concomitant]
     Indication: DRUG USE FOR UNKNOWN INDICATION
  9. GLUCORTICOIDS [Concomitant]
     Indication: DRUG USE FOR UNKNOWN INDICATION

REACTIONS (2)
  - ESCHERICHIA URINARY TRACT INFECTION [None]
  - OSTEOARTHRITIS [None]
